FAERS Safety Report 5487348-7 (Version None)
Quarter: 2007Q4

REPORT INFORMATION
  Report Type: 
  Country: None (occurrence: None)
  Receive Date: 20071016
  Receipt Date: 20071004
  Transmission Date: 20080405
  Serious: Yes (Hospitalization)
  Sender: FDA-Public Use
  Company Number: FR-PFIZER INC-2007067396

PATIENT
  Sex: Male
  Weight: 70 kg

DRUGS (9)
  1. SUTENT [Suspect]
     Indication: RENAL CELL CARCINOMA STAGE UNSPECIFIED
     Dosage: DAILY DOSE:50MG-FREQ:DAILY
     Route: 048
  2. INDAPAMIDE [Concomitant]
     Indication: HYPERTENSION
     Dosage: TEXT:1 TAB
     Route: 048
  3. IRBESARTAN [Concomitant]
     Indication: HYPERTENSION
     Route: 048
     Dates: start: 20070717, end: 20070809
  4. DETENSIEL [Concomitant]
     Indication: HYPERTENSION
     Route: 048
  5. LOXEN [Concomitant]
     Indication: HYPERTENSION
     Route: 048
  6. KARDEGIC [Concomitant]
     Indication: CEREBROVASCULAR ACCIDENT
     Route: 048
  7. OMEPRAZOLE [Concomitant]
     Indication: ABDOMINAL PAIN UPPER
     Route: 048
  8. DAFALGAN [Concomitant]
     Indication: PAIN
     Route: 048
  9. IMOVANE [Concomitant]

REACTIONS (8)
  - AREFLEXIA [None]
  - ARTHRALGIA [None]
  - COORDINATION ABNORMAL [None]
  - HYPERTENSION [None]
  - LIPASE INCREASED [None]
  - MYALGIA [None]
  - SENSORY DISTURBANCE [None]
  - THROMBOCYTOPENIA [None]
